FAERS Safety Report 7737247-2 (Version None)
Quarter: 2011Q3

REPORT INFORMATION
  Report Type: 
  Country: None (occurrence: None)
  Receive Date: 20110908
  Receipt Date: 20110824
  Transmission Date: 20111222
  Serious: Yes (Hospitalization, Other)
  Sender: FDA-Public Use
  Company Number: TR-JNJFOC-20110901014

PATIENT
  Age: 5 Year
  Sex: Female

DRUGS (9)
  1. VALPROIC ACID [Suspect]
     Indication: STATUS EPILEPTICUS
     Dosage: 20-30 MG/KG MAXIMUM 500MG
     Route: 042
  2. MIDAZOLAM HCL [Suspect]
     Dosage: 0.1 MG/KG, MAXIMUM 5 MG
     Route: 002
  3. TOPIRAMATE [Suspect]
     Dosage: LOADING DOSE, NASOGASTRIC ROUTE OF DRUG ADMINISTRATION
     Route: 050
  4. PHENOBARBITAL TAB [Suspect]
     Indication: STATUS EPILEPTICUS
     Dosage: 15-20 MG/KG MAXIMUM 1 G
     Route: 042
  5. TOPIRAMATE [Suspect]
     Indication: STATUS EPILEPTICUS
     Route: 050
  6. PHENOBARBITAL TAB [Suspect]
     Route: 042
  7. TOPIRAMATE [Suspect]
     Route: 050
  8. MIDAZOLAM HCL [Suspect]
     Indication: STATUS EPILEPTICUS
     Dosage: 0.5 MG/KG BOLUS AND THEN START 2 UG/KG/MIN, MAXIMUM 24 UG/KG/MIN
     Route: 042
  9. CARBAMAZEPINE [Suspect]
     Indication: CONVULSION
     Route: 065

REACTIONS (3)
  - METABOLIC ACIDOSIS [None]
  - INCORRECT ROUTE OF DRUG ADMINISTRATION [None]
  - DRUG EFFECT DECREASED [None]
